FAERS Safety Report 16594785 (Version 1)
Quarter: 2019Q3

REPORT INFORMATION
  Report Type: Spontaneous
  Country: US (occurrence: US)
  Receive Date: 20190718
  Receipt Date: 20190718
  Transmission Date: 20191004
  Serious: Yes (Other)
  Sender: FDA-Public Use
  Company Number: US-TEVA-2019-US-1079511

PATIENT
  Sex: Female

DRUGS (1)
  1. BUTALBITAL/PARACETAMOL/CAFFEINE [Suspect]
     Active Substance: ACETAMINOPHEN\BUTABARBITAL\CAFFEINE
     Indication: HEADACHE
     Route: 065

REACTIONS (5)
  - Drug dependence [Unknown]
  - Withdrawal syndrome [Unknown]
  - Speech disorder [Recovered/Resolved]
  - Delusion [Recovered/Resolved]
  - Paranoia [Recovered/Resolved]
